FAERS Safety Report 10151382 (Version 1)
Quarter: 2014Q2

REPORT INFORMATION
  Report Type: Spontaneous
  Country: US (occurrence: US)
  Receive Date: 20140502
  Receipt Date: 20140502
  Transmission Date: 20141212
  Serious: No
  Sender: FDA-Public Use
  Company Number: US-ASTRAZENECA-2013SE69398

PATIENT
  Sex: Female

DRUGS (3)
  1. PRILOSEC OTC [Suspect]
     Route: 048
     Dates: start: 20130901, end: 20130907
  2. PRILOSEC OTC [Suspect]
     Route: 048
     Dates: start: 20130909, end: 20130909
  3. VITAMIN D3 [Suspect]
     Route: 048
     Dates: start: 20130901, end: 20130909

REACTIONS (4)
  - Discomfort [Unknown]
  - Pollakiuria [Unknown]
  - Somnolence [Unknown]
  - Rash [Recovering/Resolving]
